FAERS Safety Report 13138732 (Version 4)
Quarter: 2017Q1

REPORT INFORMATION
  Report Type: Spontaneous
  Country: US (occurrence: US)
  Receive Date: 20170123
  Receipt Date: 20170324
  Transmission Date: 20170428
  Serious: No
  Sender: FDA-Public Use
  Company Number: US-PFIZER INC-2017025067

PATIENT
  Age: 65 Year
  Sex: Male
  Weight: 71 kg

DRUGS (3)
  1. SUTENT [Suspect]
     Active Substance: SUNITINIB MALATE
     Indication: RENAL CELL CARCINOMA
     Dosage: 50 MG, CYCLIC (DAYS 1-14 EVERY 21 DAYS)/(1D-14D Q 21 D)
     Route: 048
     Dates: start: 20170114
  2. SUTENT [Suspect]
     Active Substance: SUNITINIB MALATE
     Dosage: UNK, CYCLIC
     Dates: start: 20170318
  3. SUTENT [Suspect]
     Active Substance: SUNITINIB MALATE
     Dosage: 50 MG, CYCLIC (DAY 1-14 Q 21 DAYS)
     Route: 048
     Dates: start: 20170114

REACTIONS (19)
  - Nasopharyngitis [Unknown]
  - Oral pain [Unknown]
  - Dry skin [Unknown]
  - Nausea [Unknown]
  - Muscular weakness [Unknown]
  - Fall [Unknown]
  - Gastrooesophageal reflux disease [Unknown]
  - Rhinorrhoea [Unknown]
  - Rash [Unknown]
  - Dyspnoea [Unknown]
  - Decreased appetite [Recovering/Resolving]
  - Dysphagia [Recovering/Resolving]
  - Diarrhoea [Unknown]
  - Fatigue [Unknown]
  - Stomatitis [Unknown]
  - Pain [Unknown]
  - Intentional product misuse [Unknown]
  - Gait disturbance [Unknown]
  - Product use issue [Unknown]
